FAERS Safety Report 9028673 (Version 2)
Quarter: 2013Q1

REPORT INFORMATION
  Report Type: Spontaneous
  Country: AR (occurrence: AR)
  Receive Date: 20130124
  Receipt Date: 20130131
  Transmission Date: 20140127
  Serious: Yes (Hospitalization, Other)
  Sender: FDA-Public Use
  Company Number: PHHY2013AR006301

PATIENT
  Sex: Female

DRUGS (3)
  1. DIOVAN [Suspect]
     Indication: HYPERTENSION
     Dosage: 160 MG, DAILY
     Route: 048
  2. BIDECAR [Concomitant]
     Indication: DIABETES MELLITUS
     Dosage: 1 DF, DAILY
  3. INSULIN [Concomitant]

REACTIONS (6)
  - Hypertension [Recovered/Resolved]
  - Thrombosis [Recovered/Resolved]
  - Tachycardia [Not Recovered/Not Resolved]
  - Hypoglycaemia [Unknown]
  - Blood glucose abnormal [Unknown]
  - Dizziness [Not Recovered/Not Resolved]
